FAERS Safety Report 14010668 (Version 1)
Quarter: 2017Q3

REPORT INFORMATION
  Report Type: Spontaneous
  Country: US (occurrence: None)
  Receive Date: 20170925
  Receipt Date: 20170925
  Transmission Date: 20171128
  Serious: No
  Sender: FDA-Public Use
  Company Number: None

PATIENT
  Sex: Female

DRUGS (4)
  1. OTREXUP [Suspect]
     Active Substance: METHOTREXATE
     Route: 058
     Dates: start: 201707
  2. ENBREL [Suspect]
     Active Substance: ETANERCEPT
     Indication: OSTEOARTHRITIS
     Route: 058
     Dates: start: 201709
  3. ENBREL [Suspect]
     Active Substance: ETANERCEPT
     Indication: PERIARTHRITIS
     Route: 058
     Dates: start: 201709
  4. ENBREL [Suspect]
     Active Substance: ETANERCEPT
     Indication: RHEUMATOID ARTHRITIS
     Route: 058
     Dates: start: 201709

REACTIONS (5)
  - Hyperhidrosis [None]
  - Feeling hot [None]
  - Hypersensitivity [None]
  - Ear pruritus [None]
  - Rhinorrhoea [None]
